FAERS Safety Report 5860975-0 (Version None)
Quarter: 2008Q3

REPORT INFORMATION
  Report Type: 
  Country: None (occurrence: None)
  Receive Date: 20080827
  Receipt Date: 20080117
  Transmission Date: 20090109
  Serious: No
  Sender: FDA-Public Use
  Company Number: US-ABBOTT-08P-163-0434003-00

PATIENT
  Sex: Female

DRUGS (3)
  1. NIASPAN [Suspect]
     Indication: BLOOD CHOLESTEROL INCREASED
     Route: 048
     Dates: start: 20071101
  2. NIASPAN [Suspect]
     Route: 048
     Dates: end: 20071228
  3. NIASPAN [Suspect]
     Route: 048
     Dates: start: 20071228

REACTIONS (1)
  - BLOOD GLUCOSE INCREASED [None]
